FAERS Safety Report 4326008-2 (Version None)
Quarter: 2004Q1

REPORT INFORMATION
  Report Type: 
  Country: None (occurrence: None)
  Receive Date: 20040329
  Receipt Date: 20040322
  Transmission Date: 20041129
  Serious: Yes (Hospitalization)
  Sender: FDA-Public Use
  Company Number: US-BRISTOL-MYERS SQUIBB COMPANY-12538807

PATIENT
  Age: 54 Year
  Sex: Female

DRUGS (1)
  1. GATIFLOXACIN [Suspect]
     Indication: ACUTE SINUSITIS
     Route: 048

REACTIONS (2)
  - CIRCULATORY COLLAPSE [None]
  - ELECTROCARDIOGRAM QT CORRECTED INTERVAL PROLONGED [None]
